FAERS Safety Report 7898851 (Version 2)
Quarter: 2013Q4

REPORT INFORMATION
  Report Type: Spontaneous
  Country: GB (occurrence: None)
  Receive Date: 20110323
  Receipt Date: 20131119
  Transmission Date: 20140711
  Serious: Yes (Hospitalization, Other)
  Sender: FDA-Public Use
  Company Number: 20110202

PATIENT
  Age: 48 Year
  Sex: Female

DRUGS (2)
  1. METHYLENE BLUE [Suspect]
     Indication: PARATHYROID DISORDER
     Dosage: 5 MG/KG IN 500 ML 5% DEXTROSE, INTRAVENOUS DRIP
     Route: 041
  2. 5% DEXTROSE [Concomitant]

REACTIONS (7)
  - Nervous system disorder [None]
  - Off label use [None]
  - Vomiting [None]
  - Grand mal convulsion [None]
  - Status epilepticus [None]
  - Chromaturia [None]
  - Toxic encephalopathy [None]
